FAERS Safety Report 12859836 (Version 2)
Quarter: 2016Q4

REPORT INFORMATION
  Report Type: Report from Study
  Country: CZ (occurrence: CZ)
  Receive Date: 20161018
  Receipt Date: 20161027
  Transmission Date: 20170207
  Serious: Yes (Death, Other)
  Sender: FDA-Public Use
  Company Number: PHHY2016CZ142620

PATIENT
  Age: 58 Year
  Sex: Male

DRUGS (1)
  1. SANDOSTATIN LAR DEPOT [Suspect]
     Active Substance: OCTREOTIDE ACETATE
     Indication: NEUROENDOCRINE TUMOUR
     Dosage: 30 OT, UNK
     Route: 065
     Dates: start: 20130916, end: 20160331

REACTIONS (6)
  - Second primary malignancy [Fatal]
  - Pneumonia [Fatal]
  - Malignant neoplasm progression [Unknown]
  - Cholangiocarcinoma [Unknown]
  - Colon cancer [Fatal]
  - Metastases to liver [Unknown]

NARRATIVE: CASE EVENT DATE: 20160628
